FAERS Safety Report 13677896 (Version 11)
Quarter: 2019Q1

REPORT INFORMATION
  Report Type: Report from Study
  Country: AU (occurrence: AU)
  Receive Date: 20170622
  Receipt Date: 20190313
  Transmission Date: 20190417
  Serious: Yes (Life-Threatening, Hospitalization, Other)
  Sender: FDA-Public Use
  Company Number: AU-SA-2017SA039168

PATIENT
  Age: 46 Year
  Sex: Female
  Weight: 104.2 kg

DRUGS (21)
  1. OXYBUTYNIN. [Concomitant]
     Active Substance: OXYBUTYNIN CHLORIDE
     Dosage: 25 MG,UNK
     Route: 065
     Dates: start: 20180129
  2. THYROXIN [Concomitant]
     Active Substance: LEVOTHYROXINE
     Dosage: 50 MG,UNK
     Route: 065
  3. PROCHLORPERAZINE. [Concomitant]
     Active Substance: PROCHLORPERAZINE
     Dosage: 12.5 MG,PRN
     Route: 030
  4. MIDAZOLAM [Concomitant]
     Active Substance: MIDAZOLAM HYDROCHLORIDE
     Dosage: UNK UNK,UNK
     Route: 065
  5. LIDOCAINE. [Concomitant]
     Active Substance: LIDOCAINE
     Dosage: UNK UNK,UNK
     Route: 065
  6. FENTANYL. [Concomitant]
     Active Substance: FENTANYL
     Dosage: UNK UNK,UNK
     Route: 042
  7. TEMAZEPAM. [Concomitant]
     Active Substance: TEMAZEPAM
     Dosage: 10 MG,UNK
     Route: 065
     Dates: start: 20180130
  8. ENOXAPARIN [Concomitant]
     Active Substance: ENOXAPARIN
     Dosage: 40 MG,UNK
     Route: 058
  9. DICLOFENAC [Concomitant]
     Active Substance: DICLOFENAC
     Dosage: 50 MG,UNK
     Route: 065
  10. ONDANSETRON [Concomitant]
     Active Substance: ONDANSETRON
     Dosage: 4 MG,PRN
     Route: 042
  11. DEXAMETHASONE. [Concomitant]
     Active Substance: DEXAMETHASONE
     Dosage: 4 MG,PRN
     Route: 042
  12. PARACETAMOL [Concomitant]
     Active Substance: ACETAMINOPHEN
     Dosage: 1 G,UNK
     Route: 042
  13. OXYBUTYNIN. [Concomitant]
     Active Substance: OXYBUTYNIN CHLORIDE
     Dosage: 5 MG,UNK
     Route: 065
     Dates: start: 20180129
  14. ERGOCALCIFEROL. [Concomitant]
     Active Substance: ERGOCALCIFEROL
     Dosage: UNK UNK,UNK
     Route: 065
  15. TRAMADOL. [Concomitant]
     Active Substance: TRAMADOL
     Dosage: UNK UNK,UNK
     Route: 065
     Dates: start: 20180129
  16. PARACETAMOL [Concomitant]
     Active Substance: ACETAMINOPHEN
     Dosage: 4 G,UNK
     Route: 048
     Dates: start: 20180129, end: 201802
  17. METOCLOPRAMIDE. [Concomitant]
     Active Substance: METOCLOPRAMIDE
     Dosage: 10 MG,PRN
  18. PROPOFOL. [Concomitant]
     Active Substance: PROPOFOL
     Dosage: UNK UNK,UNK
     Route: 065
  19. ALEMTUZUMAB [Suspect]
     Active Substance: ALEMTUZUMAB
     Indication: MULTIPLE SCLEROSIS RELAPSE
     Dosage: 12 MG,QD
     Route: 041
     Dates: start: 20170206, end: 20170210
  20. MAXOLON [Concomitant]
     Active Substance: METOCLOPRAMIDE HYDROCHLORIDE
     Dosage: 10 MG,UNK
     Route: 048
     Dates: start: 20180116
  21. DROPERIDOL. [Concomitant]
     Active Substance: DROPERIDOL
     Dosage: UNK UNK,PRN
     Route: 042

REACTIONS (23)
  - Anaemia [Not Recovered/Not Resolved]
  - Leukopenia [Not Recovered/Not Resolved]
  - Mastitis [Recovered/Resolved]
  - Multiple sclerosis relapse [Not Recovered/Not Resolved]
  - Neutropenia [Recovered/Resolved]
  - Breast cancer [Not Recovered/Not Resolved]
  - Neutropenia [Recovered/Resolved]
  - Leukopenia [Recovered/Resolved]
  - Mastitis [Recovered/Resolved]
  - Breast cellulitis [Recovering/Resolving]
  - Pyrexia [Recovered/Resolved]
  - Insomnia [Recovered/Resolved]
  - Basedow^s disease [Recovered/Resolved]
  - Headache [Recovering/Resolving]
  - Fatigue [Recovered/Resolved]
  - Pain [Recovered/Resolved]
  - Poor venous access [Recovered/Resolved]
  - Breast haematoma [Recovered/Resolved]
  - Breast enlargement [Recovered/Resolved]
  - Febrile neutropenia [Recovered/Resolved]
  - Mastitis [Recovered/Resolved]
  - Anaemia [Recovered/Resolved]
  - Hypothyroidism [Not Recovered/Not Resolved]

NARRATIVE: CASE EVENT DATE: 20170206
